FAERS Safety Report 23081081 (Version 1)
Quarter: 2023Q4

REPORT INFORMATION
  Report Type: Spontaneous
  Country: US (occurrence: US)
  Receive Date: 20231018
  Receipt Date: 20231018
  Transmission Date: 20240109
  Serious: Yes (Hospitalization, Other)
  Sender: FDA-Public Use
  Company Number: US-009507513-2310USA007561

PATIENT
  Age: 90 Year
  Sex: Male

DRUGS (5)
  1. KEYTRUDA [Suspect]
     Active Substance: PEMBROLIZUMAB
     Indication: Lung adenocarcinoma
     Dosage: UNK
     Dates: start: 20231002
  2. ABRAXANE [Suspect]
     Active Substance: PACLITAXEL
     Indication: Lung adenocarcinoma
     Dosage: UNK
     Dates: start: 20231002, end: 20231002
  3. ABRAXANE [Suspect]
     Active Substance: PACLITAXEL
     Dosage: UNK
     Dates: start: 20231009, end: 20231009
  4. GEMZAR [Suspect]
     Active Substance: GEMCITABINE HYDROCHLORIDE
     Dosage: UNK
     Dates: start: 20231002, end: 20231002
  5. GEMZAR [Suspect]
     Active Substance: GEMCITABINE HYDROCHLORIDE
     Dosage: UNK
     Dates: start: 20231009, end: 20231009

REACTIONS (11)
  - Myocardial infarction [Unknown]
  - Stevens-Johnson syndrome [Unknown]
  - Incontinence [Unknown]
  - Malaise [Unknown]
  - Oedema peripheral [Unknown]
  - Cough [Unknown]
  - Chills [Unknown]
  - Diarrhoea [Unknown]
  - Dyspnoea [Unknown]
  - Rash [Unknown]
  - Product use issue [Unknown]

NARRATIVE: CASE EVENT DATE: 20231002
